FAERS Safety Report 18589530 (Version 2)
Quarter: 2020Q4

REPORT INFORMATION
  Report Type: Spontaneous
  Country: US (occurrence: US)
  Receive Date: 20201208
  Receipt Date: 20201211
  Transmission Date: 20210114
  Serious: Yes (Hospitalization, Other)
  Sender: FDA-Public Use
  Company Number: US-SA-2020SA349463

PATIENT

DRUGS (1)
  1. LUMIZYME [Suspect]
     Active Substance: ALGLUCOSIDASE ALFA
     Dosage: UNK
     Route: 041
     Dates: start: 20201130, end: 20201130

REACTIONS (7)
  - Upper airway obstruction [Recovering/Resolving]
  - Eye movement disorder [Recovering/Resolving]
  - Pyrexia [Recovering/Resolving]
  - Swollen tongue [Recovering/Resolving]
  - Dysarthria [Recovering/Resolving]
  - Palpitations [Recovering/Resolving]
  - Dyspnoea [Recovering/Resolving]

NARRATIVE: CASE EVENT DATE: 20201130
